FAERS Safety Report 9000916 (Version 1)
Quarter: 2013Q1

REPORT INFORMATION
  Report Type: Spontaneous
  Country: US (occurrence: None)
  Receive Date: 20130103
  Receipt Date: 20130103
  Transmission Date: 20140127
  Serious: Yes (Other)
  Sender: FDA-Public Use
  Company Number: None

PATIENT
  Age: 72 Year
  Sex: Male
  Weight: 70.76 kg

DRUGS (5)
  1. OMEPRAZOLE [Suspect]
     Indication: GASTROOESOPHAGEAL REFLUX DISEASE
     Route: 048
     Dates: start: 20121128, end: 20121205
  2. OMEPRAZOLE [Suspect]
     Indication: BARRETT^S OESOPHAGUS
     Route: 048
     Dates: start: 20121128, end: 20121205
  3. SIMVASTATIN [Concomitant]
  4. LISINOPRIL [Concomitant]
  5. ASA [Concomitant]

REACTIONS (4)
  - Drug ineffective [None]
  - Gastrooesophageal reflux disease [None]
  - Hiccups [None]
  - Product substitution issue [None]
